FAERS Safety Report 7104931-3 (Version None)
Quarter: 2010Q4

REPORT INFORMATION
  Report Type: 
  Country: None (occurrence: None)
  Receive Date: 20101116
  Receipt Date: 20101111
  Transmission Date: 20110411
  Serious: Yes (Life-Threatening, Hospitalization)
  Sender: FDA-Public Use
  Company Number: JP-BRACCO-004275

PATIENT
  Age: 75 Year
  Sex: Female

DRUGS (2)
  1. IOPAMIDOL [Suspect]
     Indication: COMPUTERISED TOMOGRAM
     Route: 042
     Dates: start: 20101025, end: 20101025
  2. CONTRAST MEDIA [Concomitant]
     Indication: COMPUTERISED TOMOGRAM
     Dates: start: 20080101, end: 20080101

REACTIONS (3)
  - ERYTHEMA [None]
  - OEDEMA MOUTH [None]
  - RESPIRATORY ARREST [None]
